FAERS Safety Report 5263177-4 (Version None)
Quarter: 2007Q1

REPORT INFORMATION
  Report Type: 
  Country: None (occurrence: None)
  Receive Date: 20061219
  Receipt Date: 20061030
  Transmission Date: 20070707
  Serious: No
  Sender: FDA-Public Use
  Company Number: 2006US002460

PATIENT
  Sex: Male

DRUGS (8)
  1. VESICARE [Suspect]
     Indication: HYPERTONIC BLADDER
     Dosage: 5 MG, ORAL
     Route: 048
  2. FLOMAX [Concomitant]
  3. ATENOLOL [Concomitant]
  4. LISINOPRIL (LISINOPRIL DIHYDRATE) [Concomitant]
  5. ADALAT [Concomitant]
  6. HYDROCHLOROTHIAZIDE [Concomitant]
  7. AMBIEN [Concomitant]
  8. LUPRON [Concomitant]

REACTIONS (2)
  - DRY MOUTH [None]
  - POLLAKIURIA [None]
